FAERS Safety Report 17520649 (Version 1)
Quarter: 2020Q1

REPORT INFORMATION
  Report Type: Spontaneous
  Country: US (occurrence: US)
  Receive Date: 20200309
  Receipt Date: 20200309
  Transmission Date: 20200409
  Serious: Yes (Other)
  Sender: FDA-Public Use
  Company Number: NVSC2020US064821

PATIENT
  Age: 85 Year
  Sex: Female

DRUGS (1)
  1. DOXYCYCLINE. [Suspect]
     Active Substance: DOXYCYCLINE
     Indication: HYPERSENSITIVITY
     Dosage: UNK
     Route: 065

REACTIONS (8)
  - Toxic epidermal necrolysis [Recovered/Resolved]
  - Blister [Unknown]
  - Erythema [Unknown]
  - Rash pruritic [Unknown]
  - Conjunctivitis [Unknown]
  - Mouth ulceration [Unknown]
  - Rash erythematous [Unknown]
  - Skin exfoliation [Unknown]
